FAERS Safety Report 8505295-0 (Version None)
Quarter: 2012Q3

REPORT INFORMATION
  Report Type: 
  Country: None (occurrence: None)
  Receive Date: 20120712
  Receipt Date: 20120703
  Transmission Date: 20120928
  Serious: Yes (Other)
  Sender: FDA-Public Use
  Company Number: CA-JNJFOC-20120701532

PATIENT
  Sex: Female

DRUGS (8)
  1. REMICADE [Suspect]
     Indication: CROHN'S DISEASE
     Route: 042
     Dates: start: 20110929
  2. REMICADE [Suspect]
     Route: 042
     Dates: start: 20120525
  3. CALCIUM [Concomitant]
     Route: 065
  4. MULTI-VITAMINS [Concomitant]
     Route: 065
  5. PREVACID [Concomitant]
     Route: 065
  6. ZINC SULFATE [Concomitant]
     Route: 065
  7. CLONAZEPAM [Concomitant]
     Route: 065
  8. CALCIUM [Concomitant]
     Dosage: VID [SIC]
     Route: 065

REACTIONS (4)
  - NEPHROLITHIASIS [None]
  - ABDOMINAL DISCOMFORT [None]
  - ABDOMINAL DISTENSION [None]
  - INFUSION RELATED REACTION [None]
